FAERS Safety Report 4969228-6 (Version None)
Quarter: 2006Q2

REPORT INFORMATION
  Report Type: 
  Country: None (occurrence: None)
  Receive Date: 20060405
  Receipt Date: 20060322
  Transmission Date: 20061013
  Serious: Yes (Hospitalization)
  Sender: FDA-Public Use
  Company Number: 2006041094

PATIENT
  Sex: Female
  Weight: 63.5036 kg

DRUGS (4)
  1. DETROL LA [Suspect]
     Indication: NOCTURIA
     Dosage: 4 MG (4 MG, 1 IN 1 D), ORAL
     Route: 048
  2. FOSAMAX [Concomitant]
  3. NIASPAN [Concomitant]
  4. CELEBREX [Concomitant]

REACTIONS (2)
  - HEADACHE [None]
  - HYPOTHYROIDISM [None]
